FAERS Safety Report 6828621-7 (Version None)
Quarter: 2010Q3

REPORT INFORMATION
  Report Type: 
  Country: None (occurrence: None)
  Receive Date: 20100702
  Receipt Date: 20100619
  Transmission Date: 20110219
  Serious: Yes (Other)
  Sender: FDA-Public Use
  Company Number: 10-080

PATIENT
  Age: 79 Year
  Sex: Female

DRUGS (3)
  1. CEFEPIME [Suspect]
     Indication: SEPSIS
     Dosage: 2 G EVERY 12 HOURS, IV
     Route: 042
  2. VANCOMYCIN [Concomitant]
  3. TOBRAMYCIN [Concomitant]

REACTIONS (4)
  - BLOOD CREATININE INCREASED [None]
  - CREATININE RENAL CLEARANCE DECREASED [None]
  - DELIRIUM [None]
  - STATUS EPILEPTICUS [None]
